FAERS Safety Report 6068268-6 (Version None)
Quarter: 2009Q1

REPORT INFORMATION
  Report Type: 
  Country: None (occurrence: None)
  Receive Date: 20090206
  Receipt Date: 20090127
  Transmission Date: 20090719
  Serious: Yes (Disabling, Other)
  Sender: FDA-Public Use
  Company Number: PHEH2006US07269

PATIENT
  Sex: Female

DRUGS (18)
  1. ESTRADERM [Suspect]
     Indication: HORMONE REPLACEMENT THERAPY
     Dosage: 0.1 MG, BIW
     Route: 062
  2. PREMPRO [Suspect]
     Indication: HORMONE REPLACEMENT THERAPY
     Dosage: 0.625/5.0
     Dates: start: 19990401, end: 20020401
  3. PREMARIN [Suspect]
     Indication: HORMONE REPLACEMENT THERAPY
     Dosage: UNK MG, UNK
  4. PROVERA [Suspect]
     Indication: HORMONE REPLACEMENT THERAPY
     Dosage: 10 MG, UNK
  5. CYCRIN [Suspect]
     Indication: HORMONE REPLACEMENT THERAPY
  6. ESTRATEST [Suspect]
  7. DELESTROGEN [Suspect]
     Indication: MENSTRUATION IRREGULAR
  8. TRANXENE [Concomitant]
  9. DYAZIDE [Concomitant]
  10. CAPOTEN [Concomitant]
  11. DETROL [Concomitant]
     Indication: URINARY INCONTINENCE
  12. VASOTEC [Concomitant]
  13. PAXIL [Concomitant]
  14. ALPRAZOLAM [Concomitant]
  15. TAMOXIFEN CITRATE [Concomitant]
     Dosage: 20 MG, UNK
  16. COMBIVENT [Concomitant]
  17. LOTREL [Concomitant]
  18. CARDIZEM [Concomitant]

REACTIONS (16)
  - ASPIRATION BREAST [None]
  - BIOPSY [None]
  - BLOOD CHOLESTEROL INCREASED [None]
  - BREAST CANCER [None]
  - BREAST LUMP REMOVAL [None]
  - BREAST MASS [None]
  - BREAST NEOPLASM [None]
  - BRONCHITIS CHRONIC [None]
  - DEPRESSION [None]
  - FIBROCYSTIC BREAST DISEASE [None]
  - HYSTEROSCOPY [None]
  - MAMMOGRAM ABNORMAL [None]
  - SPINAL OSTEOARTHRITIS [None]
  - SURGERY [None]
  - TONSILLAR DISORDER [None]
  - UTERINE DILATION AND CURETTAGE [None]
